FAERS Safety Report 9918723 (Version 2)
Quarter: 2014Q1

REPORT INFORMATION
  Report Type: Report from Study
  Country: US (occurrence: US)
  Receive Date: 20140224
  Receipt Date: 20140311
  Transmission Date: 20141002
  Serious: Yes (Other)
  Sender: FDA-Public Use
  Company Number: US-ROCHE-1336835

PATIENT
  Age: 58 Year
  Sex: Female

DRUGS (8)
  1. LUCENTIS [Suspect]
     Indication: MACULAR DEGENERATION
     Route: 050
     Dates: start: 2011
  2. LUCENTIS [Suspect]
     Indication: DIABETIC RETINOPATHY
  3. AVASTIN [Suspect]
     Indication: PRODUCT USED FOR UNKNOWN INDICATION
     Route: 065
  4. TRIAMCINOLONE ACETONIDE [Concomitant]
     Route: 050
  5. XALATAN [Concomitant]
  6. TIMOLOL [Concomitant]
  7. DORZOLAMIDE [Concomitant]
     Dosage: BID OU
     Route: 065
  8. LATANOPROST [Concomitant]
     Dosage: QHS OU
     Route: 065

REACTIONS (4)
  - Macular oedema [Unknown]
  - Vitreous floaters [Not Recovered/Not Resolved]
  - Drug ineffective [Unknown]
  - Vision blurred [Unknown]
